FAERS Safety Report 6335347-5 (Version None)
Quarter: 2009Q3

REPORT INFORMATION
  Report Type: 
  Country: None (occurrence: None)
  Receive Date: 20090831
  Receipt Date: 20090819
  Transmission Date: 20100115
  Serious: Yes (Hospitalization)
  Sender: FDA-Public Use
  Company Number: JP-ELI_LILLY_AND_COMPANY-JP200907000018

PATIENT
  Age: 35 Year
  Sex: Female

DRUGS (11)
  1. OLANZAPINE [Suspect]
     Dosage: 5 MG, DAILY (1/D)
     Route: 048
  2. OLANZAPINE [Suspect]
     Dosage: 90 MG, UNK
     Route: 048
     Dates: start: 20090624, end: 20090624
  3. VEGETAMIN B [Concomitant]
     Dosage: 26 D/F, UNK
     Route: 048
     Dates: start: 20090624, end: 20090624
  4. ERIMIN [Concomitant]
     Dosage: 70 MG, UNK
     Route: 048
     Dates: start: 20090624, end: 20090624
  5. HALCION [Concomitant]
     Dosage: 2.75 MG, UNK
     Route: 048
     Dates: start: 20090624, end: 20090624
  6. EURODIN [Concomitant]
     Dosage: 28 MG, UNK
     Route: 048
     Dates: start: 20090624, end: 20090624
  7. DORAL [Concomitant]
     Dosage: 480 MG, UNK
     Route: 048
     Dates: start: 20090624, end: 20090624
  8. ATARAX [Concomitant]
     Dosage: 1800 MG, UNK
     Route: 048
     Dates: start: 20090624, end: 20090624
  9. EVAMYL [Concomitant]
     Dosage: 30 MG, UNK
     Route: 048
     Dates: start: 20090624, end: 20090624
  10. MYSLEE [Concomitant]
     Dosage: 130 MG, UNK
     Route: 048
     Dates: start: 20090624, end: 20090624
  11. ROHYPNOL [Concomitant]
     Dosage: 56 MG, UNK
     Route: 048
     Dates: start: 20090624, end: 20090624

REACTIONS (5)
  - DRUG TOXICITY [None]
  - INTENTIONAL DRUG MISUSE [None]
  - LOSS OF CONSCIOUSNESS [None]
  - MULTIPLE DRUG OVERDOSE INTENTIONAL [None]
  - SUICIDE ATTEMPT [None]
